FAERS Safety Report 9570974 (Version 1)
Quarter: 2013Q4

REPORT INFORMATION
  Report Type: Spontaneous
  Country: US (occurrence: US)
  Receive Date: 20131001
  Receipt Date: 20131001
  Transmission Date: 20140711
  Serious: Yes (Other)
  Sender: FDA-Public Use
  Company Number: US-JNJFOC-20130916938

PATIENT
  Sex: Female

DRUGS (1)
  1. ORTHO EVRA [Suspect]
     Indication: OVARIAN CYST
     Route: 062
     Dates: start: 2013

REACTIONS (2)
  - Anaphylactic reaction [Not Recovered/Not Resolved]
  - Off label use [Unknown]
